FAERS Safety Report 13226294 (Version 1)
Quarter: 2017Q1

REPORT INFORMATION
  Report Type: Spontaneous
  Country: US (occurrence: US)
  Receive Date: 20170213
  Receipt Date: 20170213
  Transmission Date: 20170428
  Serious: No
  Sender: FDA-Public Use
  Company Number: US-PFIZER INC-2017060644

PATIENT
  Age: 56 Year
  Sex: Male
  Weight: 127 kg

DRUGS (10)
  1. TAMSULOSIN [Concomitant]
     Active Substance: TAMSULOSIN
     Indication: BENIGN PROSTATIC HYPERPLASIA
     Dosage: 0.4 MG, TWICE A DAY (ONE IN MORNING, ONE AT NIGHT)
     Route: 048
     Dates: start: 201612
  2. HYDROCORTISONE. [Concomitant]
     Active Substance: HYDROCORTISONE
     Indication: HEADACHE
  3. LOSARTAN POTASSIUM. [Concomitant]
     Active Substance: LOSARTAN POTASSIUM
     Indication: HYPERTENSION
     Dosage: 25 MG, ONCE A DAY (50 MG, TAKE ONE HALF TABLET)
     Dates: start: 2014
  4. OXCARBAZEPINE. [Concomitant]
     Active Substance: OXCARBAZEPINE
     Indication: SEIZURE
     Dosage: 1800 MG, ONCE A DAY (600 MG TABLET, TAKE ONE TABLET IN MORNING, TWO IN EVENING)
     Dates: start: 2016
  5. PANTOPRAZOLE [Concomitant]
     Active Substance: PANTOPRAZOLE SODIUM
     Dosage: 40 MG, ONCE A DAY
     Route: 048
     Dates: start: 2015
  6. SERTRALINE HCL [Concomitant]
     Active Substance: SERTRALINE HYDROCHLORIDE
     Indication: ANXIETY
     Dosage: 150 MG, ONCE A DAY (100 MG, TAKE ONE AND HALF TABLET)
     Route: 048
  7. LYRICA [Suspect]
     Active Substance: PREGABALIN
     Indication: HEADACHE
     Dosage: 75 MG, ONCE A DAY (EACH NIGHT FOR ONE WEEK)
     Route: 048
     Dates: start: 20170206
  8. CIPROFLOXACIN. [Concomitant]
     Active Substance: CIPROFLOXACIN
     Indication: INFECTION
     Dosage: 500 MG, TWICE A DAY
     Route: 048
     Dates: start: 2016
  9. SERTRALINE HCL [Concomitant]
     Active Substance: SERTRALINE HYDROCHLORIDE
     Indication: DEPRESSION
  10. HYDROCORTISONE. [Concomitant]
     Active Substance: HYDROCORTISONE
     Indication: SEIZURE
     Dosage: 15 MG, TWICE A DAY (5 MG TABLET, TAKE THREE TABLETS IN MORNING AND THREE AT NIGHT)
     Route: 048
     Dates: start: 2015

REACTIONS (4)
  - Therapeutic response unexpected [Unknown]
  - Feeling abnormal [Not Recovered/Not Resolved]
  - Pre-existing condition improved [Unknown]
  - Product use issue [Unknown]

NARRATIVE: CASE EVENT DATE: 20170206
